FAERS Safety Report 6209113-5 (Version None)
Quarter: 2009Q2

REPORT INFORMATION
  Report Type: 
  Country: None (occurrence: None)
  Receive Date: 20090522
  Receipt Date: 20090126
  Transmission Date: 20091009
  Serious: No
  Sender: FDA-Public Use
  Company Number: 8041838

PATIENT
  Age: 58 Year
  Sex: Male
  Weight: 63.6 kg

DRUGS (7)
  1. CIMZIA [Suspect]
     Indication: CROHN'S DISEASE
     Dosage: 400 MG SC
     Route: 058
     Dates: start: 20081022
  2. PREDNISONE [Concomitant]
  3. NORVASC [Concomitant]
  4. NADOLOL [Concomitant]
  5. PRILOSEC [Concomitant]
  6. BENTYL [Concomitant]
  7. PENTASA [Concomitant]

REACTIONS (1)
  - NASOPHARYNGITIS [None]
